FAERS Safety Report 5078105-4 (Version None)
Quarter: 2006Q3

REPORT INFORMATION
  Report Type: 
  Country: None (occurrence: None)
  Receive Date: 20060720
  Receipt Date: 20060126
  Transmission Date: 20061208
  Serious: Yes (Death, Life-Threatening, Hospitalization)
  Sender: FDA-Public Use
  Company Number: 2006MP000098

PATIENT
  Sex: 0

DRUGS (9)
  1. AGGRASTAT [Suspect]
     Indication: CORONARY ARTERIAL STENT INSERTION
     Dosage: IV
     Route: 042
  2. ALLOPURINOL [Concomitant]
  3. ASPIRIN [Concomitant]
  4. ASPIRIN LYSINE [Concomitant]
  5. CLOPIDOGREL BISULFATE [Concomitant]
  6. FLUVASTATIN SODIUM [Concomitant]
  7. MEPROBAMATE [Concomitant]
  8. METOPROLOL SUCCINATE [Concomitant]
  9. TORSEMIDE [Concomitant]

REACTIONS (4)
  - CHILLS [None]
  - HAEMORRHAGE INTRACRANIAL [None]
  - HYPERSENSITIVITY [None]
  - THROMBOCYTOPENIA [None]
